FAERS Safety Report 23357232 (Version 1)
Quarter: 2023Q4

REPORT INFORMATION
  Report Type: Spontaneous
  Country: US (occurrence: None)
  Receive Date: 20231230
  Receipt Date: 20231230
  Transmission Date: 20240110
  Serious: No
  Sender: FDA-Public Use
  Company Number: None

PATIENT
  Age: 8 Month
  Sex: Female
  Weight: 67.05 kg

DRUGS (4)
  1. ZILRETTA [Suspect]
     Active Substance: TRIAMCINOLONE ACETONIDE
     Indication: Bone pain
     Dates: start: 20231214, end: 20231214
  2. VALSARTAN [Concomitant]
     Active Substance: VALSARTAN
  3. METOPROLOL [Concomitant]
     Active Substance: METOPROLOL
  4. TYLENOL [Concomitant]
     Active Substance: ACETAMINOPHEN

REACTIONS (25)
  - Dyspnoea [None]
  - Oropharyngeal pain [None]
  - Throat tightness [None]
  - Wheezing [None]
  - Blood pressure decreased [None]
  - Pyrexia [None]
  - Influenza like illness [None]
  - Pain [None]
  - Myalgia [None]
  - Dizziness [None]
  - Throat irritation [None]
  - Chest discomfort [None]
  - Anosmia [None]
  - Ageusia [None]
  - Oral pain [None]
  - Lip discolouration [None]
  - Cough [None]
  - Dry mouth [None]
  - Hunger [None]
  - Fatigue [None]
  - Asthenia [None]
  - Ocular discomfort [None]
  - Impaired driving ability [None]
  - Headache [None]
  - Feeling abnormal [None]

NARRATIVE: CASE EVENT DATE: 20231214
